FAERS Safety Report 10252375 (Version 2)
Quarter: 2014Q3

REPORT INFORMATION
  Report Type: Not Available
  Country: FR (occurrence: FR)
  Receive Date: 20140623
  Receipt Date: 20140905
  Transmission Date: 20150326
  Serious: Yes (Hospitalization)
  Sender: FDA-Public Use
  Company Number: FR-NAPPMUNDI-GBR-2014-0018744

PATIENT
  Age: 68 Year
  Sex: Female

DRUGS (5)
  1. OXYNORM 5 MG, GELULE [Suspect]
     Active Substance: OXYCODONE HYDROCHLORIDE
     Indication: SCIATICA
     Dosage: UNK
     Route: 048
     Dates: start: 20140218, end: 20140223
  2. OXYCONTIN [Suspect]
     Active Substance: OXYCODONE HYDROCHLORIDE
     Indication: SCIATICA
     Dosage: UNK
     Route: 048
     Dates: start: 20140218, end: 20140223
  3. HYTACAND [Suspect]
     Active Substance: CANDESARTAN CILEXETIL\HYDROCHLOROTHIAZIDE
     Indication: HYPERTENSION
     Dosage: UNK
     Route: 048
     Dates: start: 2011, end: 20140224
  4. DEROXAT [Concomitant]
     Active Substance: PAROXETINE HYDROCHLORIDE
  5. CORTANCYL [Suspect]
     Active Substance: PREDNISONE
     Indication: SCIATICA
     Dosage: UNK
     Route: 065
     Dates: start: 20140218, end: 20140223

REACTIONS (2)
  - Hyponatraemia [Recovered/Resolved]
  - Fall [Recovered/Resolved]

NARRATIVE: CASE EVENT DATE: 20140223
